FAERS Safety Report 5447882-2 (Version None)
Quarter: 2007Q3

REPORT INFORMATION
  Report Type: 
  Country: None (occurrence: None)
  Receive Date: 20070910
  Receipt Date: 20070828
  Transmission Date: 20080115
  Serious: Yes (Other)
  Sender: FDA-Public Use
  Company Number: US-SHR-US-2007-020854

PATIENT
  Age: 56 Year
  Sex: Female
  Weight: 99.773 kg

DRUGS (24)
  1. BETASERON [Suspect]
     Indication: RELAPSING-REMITTING MULTIPLE SCLEROSIS
     Dosage: 8 MIU, EVERY 2D
     Route: 058
     Dates: start: 20070305, end: 20070504
  2. CORTISONE ACETATE TAB [Concomitant]
     Route: 014
     Dates: start: 20070501, end: 20070501
  3. LIDEX [Concomitant]
     Dosage: UNK, AS REQ'D
  4. ZYRTEC [Concomitant]
     Indication: MULTIPLE ALLERGIES
     Dosage: 10 MG, 1X/DAY
     Route: 048
     Dates: start: 20070630
  5. CALCIUM [Concomitant]
     Dosage: 500 MG, 3X/DAY,2X A.M., 1X P.M.
  6. CALCIUM [Concomitant]
     Dosage: 1500 MG, 2X/DAY
  7. ASCORBIC ACID [Concomitant]
     Dosage: 380 MG, 3X/DAY,
  8. ASCORBIC ACID [Concomitant]
     Dosage: 500 MG, 2X/DAY
  9. ASPIRIN [Concomitant]
     Dosage: 81 MG, 1X/DAY
  10. CHONDROITIN W/GLUCOSAMINE [Concomitant]
     Dosage: 1.2/1.5G, 2X/DAY
  11. BORON [Concomitant]
     Dosage: 3 MG, UNK
  12. MAGNESIUM SULFATE [Concomitant]
     Dosage: 250 MG, 6X/DAY
     Dates: start: 20050101
  13. GNLD LIPOTROPIC ADJUNCT SUPPLEMENT [Concomitant]
     Dosage: 3 TAB(S), 2X/DAY
     Dates: start: 20050101
  14. GNLD IV FORMULA SUPPLEMENT [Concomitant]
     Dosage: 6 TAB(S), 1X/DAY
     Dates: start: 20050101
  15. ALBUTEROL [Concomitant]
     Dosage: 2 PUFF, 2-4X PER DAY
  16. RHINOCORT [Concomitant]
     Dosage: 32 A?G, 2 SPRAYS 1X/DAY PRN
     Route: 045
  17. LASIX [Concomitant]
     Dosage: 40 MG, 1X/DAY
  18. VALIUM [Concomitant]
     Dosage: .5 TAB(S), AS REQ'D
     Route: 048
  19. POTASSIUM GLUCONATE TAB [Concomitant]
     Dosage: 10 MEQ, 1X/DAY
     Route: 048
  20. VITAMIN CAP [Concomitant]
     Dosage: UNK, 1X/DAY
  21. TREENEN (SUPP) [Concomitant]
     Dosage: 1 TAB(S), 1X/DAY
  22. TYLENOL EXTRA-STRENGTH [Concomitant]
     Indication: PREMEDICATION
     Dosage: 2 TAB(S), BEFORE BETASERON
     Route: 048
  23. TYLENOL EXTRA-STRENGTH [Concomitant]
     Dosage: EVERY 4H UNTIL ACHES STOP
  24. COLCHICINE [Concomitant]
     Dosage: .6 MG, 1X/DAY

REACTIONS (2)
  - CATARACT [None]
  - CELLULITIS [None]
